FAERS Safety Report 8029139-9 (Version None)
Quarter: 2012Q1

REPORT INFORMATION
  Report Type: 
  Country: None (occurrence: None)
  Receive Date: 20120106
  Receipt Date: 20120103
  Transmission Date: 20120608
  Serious: Yes (Other)
  Sender: FDA-Public Use
  Company Number: PHHY2011CA098699

PATIENT
  Sex: Female

DRUGS (4)
  1. ZOLEDRONOC ACID [Suspect]
     Indication: OSTEOPOROSIS
     Dosage: 5 MG/ ANNUALLY
     Route: 042
     Dates: start: 20091005
  2. CALCIUM CARBONATE [Concomitant]
     Dosage: FOR SEVERAL YEARS
  3. VITAMIN D [Concomitant]
  4. ZOLEDRONOC ACID [Suspect]
     Dosage: 5 MG/ ANNUALLY
     Route: 042
     Dates: start: 20101203

REACTIONS (3)
  - BREAST MASS [None]
  - BREAST CANCER [None]
  - ALOPECIA [None]
